FAERS Safety Report 8622589-9 (Version None)
Quarter: 2012Q3

REPORT INFORMATION
  Report Type: 
  Country: None (occurrence: None)
  Receive Date: 20120827
  Receipt Date: 20120822
  Transmission Date: 20120928
  Serious: Yes (Other)
  Sender: FDA-Public Use
  Company Number: JP-009507513-1208JPN009722

PATIENT

DRUGS (8)
  1. PEG-INTRON [Suspect]
     Indication: HEPATITIS C
     Dosage: 100 MICROGRAM PER KILOGRAM, UNK
     Route: 058
     Dates: start: 20120615, end: 20120713
  2. REBETOL [Suspect]
     Indication: HEPATITIS C
     Dosage: 800 MG, UNK
     Route: 048
     Dates: start: 20120615
  3. DIFLUNISAL [Concomitant]
     Route: 048
  4. TELAVIC [Suspect]
     Indication: HEPATITIS C
     Dosage: 2250 MG, UNK
     Route: 048
     Dates: start: 20120615
  5. JANUVIA [Concomitant]
     Route: 048
  6. TELAVIC [Suspect]
     Dosage: 1500 MG, UNK
     Route: 048
     Dates: start: 20120706, end: 20120713
  7. BASEN [Concomitant]
     Route: 048
  8. REBETOL [Suspect]
     Dosage: 400 MG, UNK
     Route: 048
     Dates: start: 20120706, end: 20120713

REACTIONS (1)
  - MALAISE [None]
